FAERS Safety Report 15415073 (Version 6)
Quarter: 2019Q2

REPORT INFORMATION
  Report Type: Spontaneous
  Country: DE (occurrence: DE)
  Receive Date: 20180921
  Receipt Date: 20190621
  Transmission Date: 20190711
  Serious: Yes (Hospitalization, Other)
  Sender: FDA-Public Use
  Company Number: DE-MYLANLABS-2018M1069107

PATIENT

DRUGS (9)
  1. DULOXETIN GLENMARK [Suspect]
     Active Substance: DULOXETINE HYDROCHLORIDE
     Dosage: 60 MILLIGRAM, QD
     Route: 048
     Dates: end: 20180409
  2. DULOXETIN GLENMARK [Suspect]
     Active Substance: DULOXETINE HYDROCHLORIDE
     Dosage: 30 MG, QD
     Route: 048
  3. DULOXETIN GLENMARK [Suspect]
     Active Substance: DULOXETINE HYDROCHLORIDE
     Dosage: 150 MILLIGRAM
  4. DULOXETIN GLENMARK [Suspect]
     Active Substance: DULOXETINE HYDROCHLORIDE
     Dosage: 30 MG, QD
     Route: 048
     Dates: start: 20180411, end: 20180416
  5. TOPIRAMATE. [Suspect]
     Active Substance: TOPIRAMATE
     Indication: PRODUCT USED FOR UNKNOWN INDICATION
     Dosage: UNK UNK, UNK
     Route: 065
     Dates: start: 20180409, end: 20180416
  6. MIRTAZAPINE. [Suspect]
     Active Substance: MIRTAZAPINE
     Indication: PRODUCT USED FOR UNKNOWN INDICATION
     Dosage: UNK UNK, UNK
     Route: 065
     Dates: start: 20180409, end: 20180416
  7. DULOXETIN GLENMARK [Suspect]
     Active Substance: DULOXETINE HYDROCHLORIDE
     Indication: MIGRAINE PROPHYLAXIS
     Dosage: 120 MG, QD
     Route: 048
  8. DULOXETIN GLENMARK [Suspect]
     Active Substance: DULOXETINE HYDROCHLORIDE
     Indication: MIGRAINE PROPHYLAXIS
     Dosage: 60 MILLIGRAM, QD
     Route: 048
     Dates: end: 20180409
  9. DULOXETIN GLENMARK [Suspect]
     Active Substance: DULOXETINE HYDROCHLORIDE
     Dosage: 100 MG, QD
     Route: 048

REACTIONS (8)
  - Hyperhidrosis [Not Recovered/Not Resolved]
  - Drug abuse [Unknown]
  - Visual impairment [Not Recovered/Not Resolved]
  - Product use in unapproved indication [Unknown]
  - Dizziness [Not Recovered/Not Resolved]
  - Hospitalisation [Unknown]
  - Sleep disorder [Not Recovered/Not Resolved]
  - Drug withdrawal syndrome [Not Recovered/Not Resolved]

NARRATIVE: CASE EVENT DATE: 20180409
